FAERS Safety Report 9661106 (Version 1)
Quarter: 2013Q4

REPORT INFORMATION
  Report Type: Spontaneous
  Country: US (occurrence: US)
  Receive Date: 20131031
  Receipt Date: 20131031
  Transmission Date: 20140711
  Serious: Yes (Other)
  Sender: FDA-Public Use
  Company Number: US-TEVA-440957USA

PATIENT
  Age: 46 Year
  Sex: Female

DRUGS (1)
  1. PROAIR HFA [Suspect]

REACTIONS (3)
  - Asthma [Unknown]
  - Device malfunction [Unknown]
  - Drug ineffective [Unknown]
